FAERS Safety Report 4601869-8 (Version None)
Quarter: 2005Q1

REPORT INFORMATION
  Report Type: 
  Country: None (occurrence: None)
  Receive Date: 20050131
  Receipt Date: 20041203
  Transmission Date: 20050727
  Serious: No
  Sender: FDA-Public Use
  Company Number: 200419261US

PATIENT
  Age: 58 Year
  Sex: Female

DRUGS (4)
  1. TELITHROMYCIN (KETEK) TABLETS [Suspect]
     Indication: BRONCHIAL INFECTION
     Dosage: 800 MG QD PO
     Route: 048
     Dates: start: 20041202
  2. ASTHMA MEDICATIONS [Concomitant]
  3. INSULIN [Concomitant]
  4. PREDNISONE [Concomitant]

REACTIONS (1)
  - VISION BLURRED [None]
